FAERS Safety Report 23126431 (Version 1)
Quarter: 2023Q4

REPORT INFORMATION
  Report Type: Spontaneous
  Country: US (occurrence: US)
  Receive Date: 20231030
  Receipt Date: 20231030
  Transmission Date: 20240109
  Serious: No
  Sender: FDA-Public Use
  Company Number: US-MYLANLABS-2023M1113168

PATIENT
  Sex: Female

DRUGS (1)
  1. CLONIDINE TRANSDERMAL SYSTEM [Suspect]
     Active Substance: CLONIDINE
     Indication: Mental disorder
     Dosage: 0.2 MILLIGRAM, QD (ONCE WEEKLY)
     Route: 062

REACTIONS (2)
  - Product adhesion issue [Unknown]
  - Off label use [Unknown]
